FAERS Safety Report 4748951-2 (Version None)
Quarter: 2005Q3

REPORT INFORMATION
  Report Type: 
  Country: None (occurrence: None)
  Receive Date: 20050819
  Receipt Date: 20050324
  Transmission Date: 20060218
  Serious: Yes (Hospitalization, Disabling)
  Sender: FDA-Public Use
  Company Number: US-MERCK-0503USA04593

PATIENT
  Age: 31 Year
  Sex: Female

DRUGS (8)
  1. VIOXX [Suspect]
     Indication: BACK DISORDER
     Route: 048
     Dates: start: 20000101, end: 20020801
  2. VIOXX [Suspect]
     Indication: ARTHRITIS
     Route: 048
     Dates: start: 20000101, end: 20020801
  3. ESGIC-PLUS TABLETS [Concomitant]
     Route: 065
  4. PREMARIN [Concomitant]
     Route: 065
  5. PROVENTIL [Concomitant]
     Route: 065
  6. EFFEXOR [Concomitant]
     Route: 065
  7. TRAZODONE HYDROCHLORIDE [Concomitant]
     Route: 065
  8. XANAX [Concomitant]
     Route: 065

REACTIONS (21)
  - ACUTE MYOCARDIAL INFARCTION [None]
  - ANGINA UNSTABLE [None]
  - ANHEDONIA [None]
  - ANXIETY [None]
  - BLOOD CHOLESTEROL INCREASED [None]
  - BUNDLE BRANCH BLOCK RIGHT [None]
  - CORONARY ARTERY DISEASE [None]
  - DEPRESSION [None]
  - EXTRASYSTOLES [None]
  - FLUID RETENTION [None]
  - HYPERTENSION [None]
  - HYPOAESTHESIA [None]
  - LIMB INJURY [None]
  - MIGRAINE [None]
  - NERVOUS SYSTEM DISORDER [None]
  - PAIN [None]
  - RASH PRURITIC [None]
  - RHEUMATOID ARTHRITIS [None]
  - TORSADE DE POINTES [None]
  - URTICARIA [None]
  - VENTRICULAR FIBRILLATION [None]
